FAERS Safety Report 5211451-X (Version None)
Quarter: 2006Q4

REPORT INFORMATION
  Report Type: 
  Country: None (occurrence: None)
  Receive Date: 20061115
  Receipt Date: 20060719
  Transmission Date: 20070319
  Serious: No
  Sender: FDA-Public Use
  Company Number: 2006161686US

PATIENT
  Age: 66 Year
  Sex: Female

DRUGS (10)
  1. APIDRA [Suspect]
     Indication: DIABETES MELLITUS NON-INSULIN-DEPENDENT
     Dosage: 10-18 U BID
  2. ESOMEPRAZOLE MAGNESIUM [Concomitant]
  3. LABETALOL HCL [Concomitant]
  4. FEXOFENADINE (ALLEGRA 01314201/) [Concomitant]
  5. NEURONTIN [Concomitant]
  6. ZOCOR [Concomitant]
  7. AMARYL [Concomitant]
  8. PARACETAMOL [Concomitant]
  9. SYNTHROID [Concomitant]
  10. ALPRAZOLAM [Concomitant]

REACTIONS (2)
  - HYPERHIDROSIS [None]
  - PRURITUS [None]
